FAERS Safety Report 14101592 (Version 1)
Quarter: 2017Q4

REPORT INFORMATION
  Report Type: Spontaneous
  Country: RU (occurrence: RU)
  Receive Date: 20171018
  Receipt Date: 20171018
  Transmission Date: 20180321
  Serious: Yes (Hospitalization, Other)
  Sender: FDA-Public Use
  Company Number: RU-ASTRAZENECA-2017SF05178

PATIENT
  Age: 54 Year
  Sex: Male
  Weight: 90 kg

DRUGS (9)
  1. BRILINTA [Suspect]
     Active Substance: TICAGRELOR
     Indication: MYOCARDIAL INFARCTION
     Route: 048
     Dates: start: 201611, end: 20170715
  2. ASPIRIN. [Concomitant]
     Active Substance: ASPIRIN
  3. VEROSPIRON [Concomitant]
     Active Substance: SPIRONOLACTONE
  4. HYPOTHIAZID [Concomitant]
     Active Substance: HYDROCHLOROTHIAZIDE
  5. BRILINTA [Suspect]
     Active Substance: TICAGRELOR
     Indication: MYOCARDIAL INFARCTION
     Route: 048
     Dates: start: 20170715
  6. WARFARIN [Concomitant]
     Active Substance: WARFARIN
     Indication: MITRAL VALVE REPLACEMENT
     Dates: start: 201707
  7. ENAP [Concomitant]
     Active Substance: ENALAPRIL
  8. CEREPRO [Concomitant]
  9. PANCREATIN [Concomitant]
     Active Substance: PANCRELIPASE

REACTIONS (1)
  - Cerebrovascular accident [Recovered/Resolved]

NARRATIVE: CASE EVENT DATE: 201702
